FAERS Safety Report 9604401 (Version 3)
Quarter: 2013Q4

REPORT INFORMATION
  Report Type: Spontaneous
  Country: CH (occurrence: CH)
  Receive Date: 20131008
  Receipt Date: 20131111
  Transmission Date: 20140711
  Serious: Yes (Death, Other)
  Sender: FDA-Public Use
  Company Number: CH-RANBAXY-2013RR-73777

PATIENT
  Age: 44 Year
  Sex: Male

DRUGS (3)
  1. METFORMIN [Suspect]
     Indication: PRODUCT USED FOR UNKNOWN INDICATION
     Dosage: UNK
     Route: 065
  2. STAVUDINE [Suspect]
     Indication: HIV INFECTION
     Dosage: UNK
     Route: 065
  3. DIDANOSINE [Suspect]
     Indication: HIV INFECTION
     Dosage: UNK
     Route: 065

REACTIONS (6)
  - Acute hepatic failure [Fatal]
  - Splenomegaly [Unknown]
  - Encephalopathy [Unknown]
  - Ascites [Unknown]
  - Oesophageal varices haemorrhage [Unknown]
  - Lactic acidosis [Fatal]
